FAERS Safety Report 6407743-9 (Version None)
Quarter: 2009Q4

REPORT INFORMATION
  Report Type: 
  Country: None (occurrence: None)
  Receive Date: 20091020
  Receipt Date: 20091012
  Transmission Date: 20100525
  Serious: Yes (Hospitalization)
  Sender: FDA-Public Use
  Company Number: US-AVENTIS-200918401US

PATIENT
  Sex: Male
  Weight: 113.4 kg

DRUGS (1)
  1. DDAVP [Suspect]
     Indication: HORMONE REPLACEMENT THERAPY
     Dosage: DOSE: UNK
     Route: 045
     Dates: start: 19890101

REACTIONS (2)
  - DRUG INEFFECTIVE [None]
  - HOSPITALISATION [None]
